FAERS Safety Report 7306954-8 (Version None)
Quarter: 2011Q1

REPORT INFORMATION
  Report Type: 
  Country: None (occurrence: None)
  Receive Date: 20110223
  Receipt Date: 20110204
  Transmission Date: 20110831
  Serious: No
  Sender: FDA-Public Use
  Company Number: US-BIOGENIDEC-2011BI005305

PATIENT
  Age: 50 Year
  Sex: Female

DRUGS (4)
  1. AVONEX [Concomitant]
     Indication: MULTIPLE SCLEROSIS
     Route: 030
     Dates: start: 20080101
  2. AVONEX [Concomitant]
     Route: 030
     Dates: start: 19961201
  3. TYSABRI [Suspect]
     Indication: MULTIPLE SCLEROSIS
     Route: 042
     Dates: start: 20080610
  4. AVONEX [Concomitant]
     Route: 030
     Dates: start: 19961201

REACTIONS (2)
  - BLEPHAROSPASM [None]
  - FATIGUE [None]
